FAERS Safety Report 17805166 (Version 1)
Quarter: 2020Q2

REPORT INFORMATION
  Report Type: Spontaneous
  Country: US (occurrence: US)
  Receive Date: 20200520
  Receipt Date: 20200520
  Transmission Date: 20200714
  Serious: Yes (Other)
  Sender: FDA-Public Use
  Company Number: US-CELLTRION INC.-2020US021956

PATIENT

DRUGS (5)
  1. EFFEXOR [Concomitant]
     Active Substance: VENLAFAXINE HYDROCHLORIDE
     Dosage: 75MG, 1 TABLET BY MOUTH DAILY
     Route: 048
  2. IRON [Concomitant]
     Active Substance: IRON
     Indication: ANAEMIA
     Dosage: UNABLE TO PROVIDE DOSE, 1 TABLET BY MOUTH DAILY
     Route: 048
  3. INFLECTRA [Suspect]
     Active Substance: INFLIXIMAB-DYYB
     Indication: CROHN^S DISEASE
     Dosage: 400MG, TITRATED. 10ML PER 1 HOUR FOR 15 MINS, 20ML FOR 30MINS, 40ML FOR 45 MINS, 80ML FOR LAST HOUR
     Route: 065
     Dates: start: 20200327
  4. OMEPRAZOLE. [Concomitant]
     Active Substance: OMEPRAZOLE
     Indication: GASTROOESOPHAGEAL REFLUX DISEASE
     Dosage: 20MG, 1 TABLET BY MOUTH DAILY
     Route: 048
  5. IMURAN [Concomitant]
     Active Substance: AZATHIOPRINE
     Indication: CROHN^S DISEASE
     Dosage: 100MG, 1 TABLET BY MOUTH DAILY
     Route: 048

REACTIONS (3)
  - Unevaluable event [Unknown]
  - Overdose [Unknown]
  - Rash [Recovering/Resolving]

NARRATIVE: CASE EVENT DATE: 20200327
